FAERS Safety Report 4567016-6 (Version None)
Quarter: 2005Q1

REPORT INFORMATION
  Report Type: 
  Country: None (occurrence: None)
  Receive Date: 20050201
  Receipt Date: 20040518
  Transmission Date: 20050727
  Serious: Yes (Other)
  Sender: FDA-Public Use
  Company Number: US-BRISTOL-MYERS SQUIBB COMPANY-12591780

PATIENT
  Age: 4 Decade
  Sex: Male

DRUGS (14)
  1. STADOL [Suspect]
     Indication: MIGRAINE
     Route: 045
  2. CYCLOBENZAPRINE [Concomitant]
  3. LORATADINE [Concomitant]
  4. ACETAMINOPHEN [Concomitant]
  5. NAPROXEN [Concomitant]
  6. TRAMADOL HCL [Concomitant]
  7. AMITRIPTYLINE [Concomitant]
  8. OXYCODONE HCL [Concomitant]
  9. SUMATRIPTAN [Concomitant]
  10. ALPRAZOLAM [Concomitant]
  11. PSEUDOEPHEDRINE HCL [Concomitant]
  12. PROPOXYPHENE HCL [Concomitant]
  13. IBUPROFEN [Concomitant]
  14. PROPRANOLOL HYDROCHLORIDE [Concomitant]

REACTIONS (1)
  - DEPENDENCE [None]
